FAERS Safety Report 15394733 (Version 1)
Quarter: 2018Q3

REPORT INFORMATION
  Report Type: Spontaneous
  Country: US (occurrence: US)
  Receive Date: 20180918
  Receipt Date: 20180918
  Transmission Date: 20181010
  Serious: Yes (Other)
  Sender: FDA-Public Use
  Company Number: US-SUN PHARMACEUTICAL INDUSTRIES LTD-2018US-181348

PATIENT
  Age: 33 Year
  Sex: Female

DRUGS (1)
  1. LOPERAMIDE [Suspect]
     Active Substance: LOPERAMIDE
     Indication: DRUG WITHDRAWAL SYNDROME
     Dosage: 70 DF, DAILY
     Route: 048

REACTIONS (5)
  - Drug abuse [Unknown]
  - Cardiotoxicity [Unknown]
  - Intentional product misuse [Unknown]
  - Electrocardiogram QT prolonged [Unknown]
  - Ventricular tachycardia [Unknown]
